FAERS Safety Report 4940484-3 (Version None)
Quarter: 2006Q1

REPORT INFORMATION
  Report Type: 
  Country: None (occurrence: None)
  Receive Date: 20060131
  Receipt Date: 20051129
  Transmission Date: 20060701
  Serious: No
  Sender: FDA-Public Use
  Company Number: 200520666US

PATIENT
  Age: 67 Year
  Sex: Female

DRUGS (8)
  1. KETEK [Suspect]
     Dates: start: 20050801
  2. BYETTA [Suspect]
     Indication: DIABETES MELLITUS NON-INSULIN-DEPENDENT
     Dosage: 5 UG
  3. BYETTA [Suspect]
     Indication: DIABETES MELLITUS NON-INSULIN-DEPENDENT
     Dosage: 10 UG BID INJ
     Dates: start: 20050730
  4. METFORMIN HYDROCHLORIDE, GLIBENCLAMIDE (GLUCOVANCE) [Concomitant]
  5. ESTROGENS CONJUGATED (PREMARIN) [Concomitant]
  6. LISINOPRIL [Concomitant]
  7. LEVOTHYROXINE SODIUM (LEVOXYL) [Concomitant]
  8. TRICOR [Concomitant]

REACTIONS (5)
  - ARTHROPOD BITE [None]
  - INJECTION SITE PAIN [None]
  - INJECTION SITE PRURITUS [None]
  - URTICARIA [None]
  - WEIGHT DECREASED [None]
